FAERS Safety Report 16714126 (Version 2)
Quarter: 2025Q3

REPORT INFORMATION
  Report Type: Spontaneous
  Country: US (occurrence: US)
  Receive Date: 20190819
  Receipt Date: 20250708
  Transmission Date: 20251020
  Serious: Yes (Other)
  Sender: AUROBINDO
  Company Number: US-AUROBINDO-AUR-APL-2019-052532

PATIENT
  Age: 3 Year
  Sex: Female

DRUGS (2)
  1. DEXAMETHASONE [Suspect]
     Active Substance: DEXAMETHASONE
     Indication: Product used for unknown indication
     Route: 065
  2. VEMURAFENIB [Concomitant]
     Active Substance: VEMURAFENIB
     Indication: Ganglioglioma
     Route: 065

REACTIONS (1)
  - Obesity [Not Recovered/Not Resolved]
